FAERS Safety Report 6101660-X (Version None)
Quarter: 2009Q1

REPORT INFORMATION
  Report Type: 
  Country: None (occurrence: None)
  Receive Date: 20090227
  Receipt Date: 20090217
  Transmission Date: 20090719
  Serious: Yes (Other)
  Sender: FDA-Public Use
  Company Number: CHPA2009US04699

PATIENT
  Age: 61 Year
  Sex: Female

DRUGS (22)
  1. PERDIEM OVERNIGHT RELIEF PILLS (NCH) (SENNA GLYCOSIDES (CA SALTS OF PU [Suspect]
     Indication: CONSTIPATION
     Dosage: 30 MG, QHS, ORAL
     Route: 048
     Dates: start: 19980101
  2. EFFEXOR [Concomitant]
  3. SEROZONE (NEFAZODONE HYDROCHLORIDE) [Concomitant]
  4. DARVOCET-N 100 [Concomitant]
  5. PERCOCET [Concomitant]
  6. PREDNISONE TAB [Concomitant]
  7. ASPIRIN [Concomitant]
  8. PREVACID [Concomitant]
  9. SYNTHROID [Concomitant]
  10. LISINOPRIL [Concomitant]
  11. SINGULAIR [Concomitant]
  12. MIRAPEX [Concomitant]
  13. PLETAL [Concomitant]
  14. PLAVIX [Concomitant]
  15. REGLAN /USA/ (METOCLOPRAMIDE HYDROCHLORIDE) [Concomitant]
  16. ZEGERID [Concomitant]
  17. CENTRUM SILVER 9ASCORBIC ACID, CALCIUM, MINERALS NOS, RETINOL, TOCOPHE [Concomitant]
  18. CALCIUM (CALCIUM) [Concomitant]
  19. MAGNESIUM (MAGNESIUM) [Concomitant]
  20. ASCORBIC ACID [Concomitant]
  21. DRUG THERAPY NOS (DRUG THERAPY NOS) [Concomitant]
  22. IRON (IRON) [Concomitant]

REACTIONS (7)
  - COELIAC DISEASE [None]
  - CORONARY ARTERY OCCLUSION [None]
  - HYPERTENSION [None]
  - INTENTIONAL DRUG MISUSE [None]
  - MULTIPLE ALLERGIES [None]
  - PERIPHERAL ARTERIAL OCCLUSIVE DISEASE [None]
  - RESTLESS LEGS SYNDROME [None]
